FAERS Safety Report 6025481-1 (Version None)
Quarter: 2008Q4

REPORT INFORMATION
  Report Type: 
  Country: None (occurrence: None)
  Receive Date: 20081231
  Receipt Date: 20081222
  Transmission Date: 20090506
  Serious: Yes (Death)
  Sender: FDA-Public Use
  Company Number: HR-ABBOTT-08P-216-0490510-00

PATIENT
  Age: 54 Year
  Sex: Female
  Weight: 70 kg

DRUGS (5)
  1. ZEMPLAR [Suspect]
     Indication: HYPERPARATHYROIDISM
  2. ERYTHROPOETIN [Concomitant]
     Indication: NEPHROGENIC ANAEMIA
     Route: 058
     Dates: start: 20050101
  3. FOLACIN [Concomitant]
     Indication: NEPHROGENIC ANAEMIA
     Dates: start: 20050101
  4. FERUM [Concomitant]
     Indication: NEPHROGENIC ANAEMIA
     Dates: start: 20050101
  5. GLURENORM [Concomitant]
     Indication: DIABETES MELLITUS
     Dosage: 1 + 0 + 1/DAY
     Dates: start: 20050101

REACTIONS (2)
  - MALAISE [None]
  - PULMONARY EMBOLISM [None]
